FAERS Safety Report 5058277-8 (Version None)
Quarter: 2006Q2

REPORT INFORMATION
  Report Type: 
  Country: None (occurrence: None)
  Receive Date: 20060622
  Receipt Date: 20060324
  Transmission Date: 20061013
  Serious: Yes (Hospitalization, Other)
  Sender: FDA-Public Use
  Company Number: US-JNJFOC-20060200899

PATIENT
  Age: 58 Year
  Sex: Male
  Weight: 148.7798 kg

DRUGS (9)
  1. DURAGESIC-100 [Suspect]
     Indication: PAIN
     Dosage: 50 UG/HR 1 IN 72 HOUR TRANSDERMAL
     Route: 062
     Dates: start: 20041201
  2. COREG (CARVEDILOL) TABLET [Concomitant]
  3. ALDACTONE [Concomitant]
  4. ZOCOR [Concomitant]
  5. COUMADIN [Concomitant]
  6. LACTULOSE (LACTULOSE) SYRUP [Concomitant]
  7. VASOTEC (ENALAPRIL MALEATE) TABLET [Concomitant]
  8. LORTAB (VICODIN) TABLET [Concomitant]
  9. GLUCOTROL (GLIPIZIDE) TABLET [Concomitant]

REACTIONS (2)
  - COUGH [None]
  - TACHYCARDIA [None]
